FAERS Safety Report 6546063-9 (Version None)
Quarter: 2010Q1

REPORT INFORMATION
  Report Type: 
  Country: None (occurrence: None)
  Receive Date: 20100119
  Receipt Date: 20100104
  Transmission Date: 20100710
  Serious: Yes (Death, Other)
  Sender: FDA-Public Use
  Company Number: AUR-APL-2010-00086

PATIENT
  Age: 90 Year
  Sex: Female

DRUGS (8)
  1. GLYBURIDE [Suspect]
     Dosage: ORAL
     Route: 048
  2. DILTIAZEM [Suspect]
     Dosage: ORAL
     Route: 048
  3. HYDRALAZINE [Suspect]
  4. TENORMIN [Suspect]
  5. WARFARIN SODIUM [Suspect]
  6. POTASSIUM CHLORIDE [Suspect]
  7. METOLAZONE [Suspect]
  8. FUROSEMIDE [Suspect]

REACTIONS (5)
  - DRUG INTERACTION [None]
  - DRUG TOXICITY [None]
  - INCORRECT DOSE ADMINISTERED [None]
  - INCORRECT ROUTE OF DRUG ADMINISTRATION [None]
  - WRONG DRUG ADMINISTERED [None]
